FAERS Safety Report 20827719 (Version 3)
Quarter: 2022Q3

REPORT INFORMATION
  Report Type: Spontaneous
  Country: US (occurrence: US)
  Receive Date: 20220513
  Receipt Date: 20220804
  Transmission Date: 20221027
  Serious: No
  Sender: FDA-Public Use
  Company Number: US-PFIZER INC-202200650259

PATIENT
  Age: 40 Year
  Sex: Female

DRUGS (1)
  1. XELJANZ XR [Suspect]
     Active Substance: TOFACITINIB CITRATE
     Dosage: 11 MG

REACTIONS (7)
  - Malaise [Unknown]
  - Weight increased [Unknown]
  - Nasopharyngitis [Unknown]
  - Ear infection [Unknown]
  - Back pain [Unknown]
  - Condition aggravated [Unknown]
  - Product dose omission issue [Unknown]
